FAERS Safety Report 4984857-1 (Version None)
Quarter: 2006Q2

REPORT INFORMATION
  Report Type: 
  Country: None (occurrence: None)
  Receive Date: 20060427
  Receipt Date: 20060418
  Transmission Date: 20061013
  Serious: Yes (Other)
  Sender: FDA-Public Use
  Company Number: CA-ROCHE-444947

PATIENT
  Age: 75 Year
  Sex: Female

DRUGS (7)
  1. NAPROXEN [Suspect]
     Indication: DRUG USE FOR UNKNOWN INDICATION
     Route: 048
  2. CRESTOR [Concomitant]
     Route: 048
  3. METOPROLOL [Concomitant]
  4. WARFARIN SODIUM [Concomitant]
  5. DIOVAN [Concomitant]
     Route: 048
  6. NITRO-DUR [Concomitant]
  7. HYDROCHLOROTHIAZIDE [Concomitant]

REACTIONS (2)
  - AMNESIA [None]
  - CONFUSIONAL STATE [None]
